FAERS Safety Report 4720024-4 (Version None)
Quarter: 2005Q3

REPORT INFORMATION
  Report Type: 
  Country: None (occurrence: None)
  Receive Date: 20050721
  Receipt Date: 20040319
  Transmission Date: 20060218
  Serious: No
  Sender: FDA-Public Use
  Company Number: US-GLAXOSMITHKLINE-A0503549A

PATIENT
  Age: 40 Year
  Sex: Male

DRUGS (1)
  1. IMITREX [Suspect]
     Indication: HEADACHE
     Dosage: 50MG AS REQUIRED
     Route: 048
     Dates: start: 20021025

REACTIONS (4)
  - DIZZINESS [None]
  - HYPERHIDROSIS [None]
  - NAUSEA [None]
  - PALPITATIONS [None]
